FAERS Safety Report 8170905-7 (Version None)
Quarter: 2012Q1

REPORT INFORMATION
  Report Type: 
  Country: None (occurrence: None)
  Receive Date: 20120228
  Receipt Date: 20120217
  Transmission Date: 20120608
  Serious: Yes (Hospitalization)
  Sender: FDA-Public Use
  Company Number: US-ACTELION-A-US2012-61419

PATIENT

DRUGS (4)
  1. TRACLEER [Suspect]
     Indication: PULMONARY ARTERIAL HYPERTENSION
     Dosage: UNK
     Route: 048
     Dates: start: 20090319
  2. TRAMADOL HCL [Suspect]
  3. COUMADIN [Concomitant]
  4. REVATIO [Concomitant]

REACTIONS (2)
  - ADVERSE DRUG REACTION [None]
  - LOSS OF CONSCIOUSNESS [None]
